FAERS Safety Report 13200602 (Version 1)
Quarter: 2017Q1

REPORT INFORMATION
  Report Type: Spontaneous
  Country: HR (occurrence: HR)
  Receive Date: 20170208
  Receipt Date: 20170208
  Transmission Date: 20170428
  Serious: Yes (Hospitalization, Other)
  Sender: FDA-Public Use
  Company Number: HR-MYLANLABS-2017M1006638

PATIENT

DRUGS (4)
  1. CERSON (NITRAZEPAM) [Suspect]
     Active Substance: NITRAZEPAM
     Route: 048
     Dates: start: 20161129
  2. OLANZAPINE. [Suspect]
     Active Substance: OLANZAPINE
     Route: 048
     Dates: start: 20161129
  3. ZYPREXA [Suspect]
     Active Substance: OLANZAPINE
     Route: 048
     Dates: start: 20161129
  4. DIAZEPAM. [Suspect]
     Active Substance: DIAZEPAM
     Dosage: A 5 MG
     Route: 048
     Dates: start: 20161129

REACTIONS (4)
  - Coma [Unknown]
  - Miosis [Unknown]
  - Extrapyramidal disorder [Unknown]
  - Suicide attempt [Unknown]

NARRATIVE: CASE EVENT DATE: 20161129
